FAERS Safety Report 8961779 (Version 1)
Quarter: 2012Q4

REPORT INFORMATION
  Report Type: 
  Country: AR (occurrence: AR)
  Receive Date: 20121213
  Receipt Date: 20121213
  Transmission Date: 20130627
  Serious: Yes (Other)
  Sender: FDA-Public Use
  Company Number: PHHY2012AR114476

PATIENT

DRUGS (1)
  1. SANDOSTATIN [Suspect]
     Indication: CARDIAC OPERATION

REACTIONS (1)
  - Pulmonary oedema [Unknown]
